FAERS Safety Report 4868172-2 (Version None)
Quarter: 2005Q4

REPORT INFORMATION
  Report Type: 
  Country: None (occurrence: None)
  Receive Date: 20051229
  Receipt Date: 20051221
  Transmission Date: 20060501
  Serious: Yes (Death)
  Sender: FDA-Public Use
  Company Number: DE-JNJFOC-20051205141

PATIENT
  Age: 79 Year
  Sex: Female
  Weight: 70 kg

DRUGS (1)
  1. RISPERDAL [Suspect]
     Route: 048
     Dates: start: 20050706, end: 20050723

REACTIONS (4)
  - BRAIN OEDEMA [None]
  - CEREBRAL HAEMORRHAGE [None]
  - SOMNOLENCE [None]
  - THROMBOCYTOPENIA [None]
